FAERS Safety Report 9798993 (Version 1)
Quarter: 2013Q4

REPORT INFORMATION
  Report Type: Spontaneous
  Country: US (occurrence: None)
  Receive Date: 20131231
  Receipt Date: 20131231
  Transmission Date: 20140711
  Serious: No
  Sender: FDA-Public Use
  Company Number: MIPO-1000454

PATIENT
  Age: 74 Year
  Sex: Female

DRUGS (1)
  1. KYNAMRO [Suspect]
     Indication: TYPE IIA HYPERLIPIDAEMIA
     Route: 058
     Dates: start: 20130705, end: 201312

REACTIONS (6)
  - Injection site reaction [None]
  - Injection site bruising [None]
  - Hepatic enzyme increased [None]
  - Abdominal pain upper [None]
  - Depressed mood [None]
  - Injection site mass [None]
